FAERS Safety Report 4982751-3 (Version None)
Quarter: 2006Q2

REPORT INFORMATION
  Report Type: 
  Country: None (occurrence: None)
  Receive Date: 20060425
  Receipt Date: 20051111
  Transmission Date: 20061013
  Serious: Yes (Hospitalization, Disabling)
  Sender: FDA-Public Use
  Company Number: US-MERCK-0511USA02056

PATIENT
  Age: 44 Year
  Sex: Male
  Weight: 80 kg

DRUGS (1)
  1. VIOXX [Suspect]
     Indication: BACK PAIN
     Route: 048
     Dates: start: 20010101, end: 20040930

REACTIONS (5)
  - ACUTE MYOCARDIAL INFARCTION [None]
  - BACK DISORDER [None]
  - PANIC DISORDER [None]
  - ROAD TRAFFIC ACCIDENT [None]
  - SPINAL DISORDER [None]
